FAERS Safety Report 4528776-3 (Version None)
Quarter: 2004Q4

REPORT INFORMATION
  Report Type: 
  Country: None (occurrence: None)
  Receive Date: 20041214
  Receipt Date: 20041203
  Transmission Date: 20050328
  Serious: Yes (Death, Hospitalization)
  Sender: FDA-Public Use
  Company Number: STA-AE-04-MTX-615

PATIENT
  Age: 64 Year
  Sex: Male

DRUGS (11)
  1. RHEUMATREX [Suspect]
     Indication: RHEUMATOID ARTHRITIS
     Dosage: 4 MG 1X PER 1 WK, ORAL
     Route: 048
     Dates: start: 20040812, end: 20041006
  2. RHEUMATREX [Suspect]
     Dosage: 6 MG 1X PER 1 WK
     Dates: start: 20041007
  3. PREDNISOLONE [Concomitant]
  4. LOXONIN (LOXOPROFEN SODIUM) [Concomitant]
  5. LANSOPRAZOLE [Concomitant]
  6. SELBEX (TEPRENONE) [Concomitant]
  7. DIGOXIN [Concomitant]
  8. WARFARIN SODIUM [Concomitant]
  9. VERAPAMIL HYDROCHLORIDE [Concomitant]
  10. LASIX [Concomitant]
  11. ALDACTONE [Concomitant]

REACTIONS (7)
  - DEPRESSED LEVEL OF CONSCIOUSNESS [None]
  - INTERSTITIAL LUNG DISEASE [None]
  - PCO2 DECREASED [None]
  - PNEUMOCYSTIS CARINII INFECTION [None]
  - PO2 DECREASED [None]
  - RESPIRATORY DISTRESS [None]
  - RESPIRATORY FAILURE [None]
